FAERS Safety Report 5311509-0 (Version None)
Quarter: 2007Q2

REPORT INFORMATION
  Report Type: 
  Country: None (occurrence: None)
  Receive Date: 20070430
  Receipt Date: 20070427
  Transmission Date: 20071010
  Serious: Yes (Death, Other)
  Sender: FDA-Public Use
  Company Number: MX-GLAXOSMITHKLINE-A0649129A

PATIENT
  Age: 78 Year
  Sex: Female

DRUGS (1)
  1. AROPAX [Suspect]
     Indication: DEPRESSION
     Dosage: 20MG ALTERNATE DAYS
     Route: 048

REACTIONS (1)
  - CEREBRAL INFARCTION [None]
